FAERS Safety Report 9853814 (Version 3)
Quarter: 2014Q1

REPORT INFORMATION
  Report Type: Spontaneous
  Country: JP (occurrence: JP)
  Receive Date: 20140129
  Receipt Date: 20140219
  Transmission Date: 20141002
  Serious: Yes (Hospitalization, Other)
  Sender: FDA-Public Use
  Company Number: JP-009507513-1401JPN010155

PATIENT
  Age: 79 Year
  Sex: Female
  Weight: 51 kg

DRUGS (11)
  1. ZETIA TABLETS 10MG [Suspect]
     Indication: DYSLIPIDAEMIA
     Dosage: 10 MG, QD
     Route: 048
     Dates: start: 20131122, end: 20140118
  2. LIPITOR [Suspect]
     Indication: DYSLIPIDAEMIA
     Dosage: 5 MG, QD
     Route: 048
     Dates: start: 201311, end: 20140118
  3. BLOPRESS [Concomitant]
     Indication: HYPERTENSION
     Dosage: 4 MG, QD
     Route: 048
     Dates: end: 20140118
  4. THYRADIN-S [Concomitant]
     Indication: HYPOTHYROIDISM
     Dosage: 100 MCG
     Route: 048
  5. GASTER D [Concomitant]
     Dosage: 20 MG, QD
     Route: 048
     Dates: end: 20140118
  6. AMARYL [Concomitant]
     Indication: DIABETES MELLITUS
     Dosage: 0.5 MG, TID
     Route: 048
     Dates: end: 20140118
  7. EQUA [Concomitant]
     Indication: DIABETES MELLITUS
     Dosage: 50 MG, BID
     Route: 048
     Dates: end: 20140118
  8. METGLUCO [Concomitant]
     Indication: DIABETES MELLITUS
     Dosage: 250 MG, BID
     Route: 048
     Dates: end: 20140118
  9. PAROXETINE HYDROCHLORIDE [Concomitant]
     Dosage: 10 MG, QD
     Route: 048
  10. AMOXAN [Concomitant]
     Dosage: 10 MG, QD
     Route: 048
  11. ETHYL LOFLAZEPATE [Concomitant]
     Dosage: 1 MG, QD
     Route: 048

REACTIONS (11)
  - Tremor [Unknown]
  - Speech disorder [Recovered/Resolved]
  - Dementia [Unknown]
  - Dehydration [Unknown]
  - Multi-organ disorder [Unknown]
  - Depressed level of consciousness [Recovering/Resolving]
  - Pyrexia [Unknown]
  - Drug-induced liver injury [Unknown]
  - Asthenia [Unknown]
  - Rhabdomyolysis [Recovered/Resolved]
  - Blood creatine phosphokinase increased [Recovering/Resolving]
